FAERS Safety Report 5355673-6 (Version None)
Quarter: 2007Q2

REPORT INFORMATION
  Report Type: 
  Country: None (occurrence: None)
  Receive Date: 20070530
  Receipt Date: 20070309
  Transmission Date: 20071010
  Serious: Yes (Other)
  Sender: FDA-Public Use
  Company Number: US200703002042

PATIENT
  Age: 18 Year
  Sex: Male
  Weight: 79 kg

DRUGS (4)
  1. ZYPREXA [Suspect]
     Dosage: SEE IMAGE
  2. SEROQUEL [Concomitant]
  3. KLONOPIN [Concomitant]
  4. EFFEXOR [Concomitant]

REACTIONS (1)
  - DIABETIC KETOACIDOSIS [None]
